FAERS Safety Report 13818557 (Version 1)
Quarter: 2017Q3

REPORT INFORMATION
  Report Type: Report from Study
  Country: CO (occurrence: CO)
  Receive Date: 20170801
  Receipt Date: 20170801
  Transmission Date: 20171127
  Serious: Yes (Other)
  Sender: FDA-Public Use
  Company Number: PHHY2017CO104629

PATIENT
  Age: 24 Year
  Sex: Male
  Weight: 55 kg

DRUGS (1)
  1. TASIGNA [Suspect]
     Active Substance: NILOTINIB
     Indication: CHRONIC MYELOID LEUKAEMIA
     Dosage: 300 MG, BID (TWO CAPS OF 150 MG EVERY 12 HRS)
     Route: 048
     Dates: start: 20170424, end: 20170704

REACTIONS (4)
  - Cytogenetic analysis abnormal [Unknown]
  - Drug ineffective [Unknown]
  - Hepatitis [Unknown]
  - Liver injury [Unknown]

NARRATIVE: CASE EVENT DATE: 20170517
